FAERS Safety Report 10803645 (Version 1)
Quarter: 2015Q1

REPORT INFORMATION
  Report Type: Spontaneous
  Country: US (occurrence: US)
  Receive Date: 20150217
  Receipt Date: 20150217
  Transmission Date: 20150721
  Serious: No
  Sender: FDA-Public Use
  Company Number: US-TEVA-541639USA

PATIENT
  Sex: Female

DRUGS (1)
  1. PARAGARD T 380A [Suspect]
     Active Substance: COPPER
     Indication: CONTRACEPTION
     Route: 015
     Dates: start: 20130228, end: 20150126

REACTIONS (3)
  - Breast pain [Unknown]
  - Pregnancy with contraceptive device [Unknown]
  - Fatigue [Unknown]

NARRATIVE: CASE EVENT DATE: 20150126
